FAERS Safety Report 6906899-9 (Version None)
Quarter: 2010Q3

REPORT INFORMATION
  Report Type: 
  Country: None (occurrence: None)
  Receive Date: 20100804
  Receipt Date: 20100728
  Transmission Date: 20110219
  Serious: Yes (Other)
  Sender: FDA-Public Use
  Company Number: US-ELI_LILLY_AND_COMPANY-US200810001617

PATIENT
  Sex: Female
  Weight: 58.05 kg

DRUGS (3)
  1. BYETTA [Suspect]
     Indication: TYPE 2 DIABETES MELLITUS
     Dosage: 10 UG, 2/D
     Route: 058
     Dates: start: 20080401
  2. LEVEMIR [Concomitant]
     Indication: TYPE 2 DIABETES MELLITUS
     Dosage: UNK, UNK
  3. METFORMIN HCL [Concomitant]
     Indication: TYPE 2 DIABETES MELLITUS
     Dosage: UNK, UNK
     Dates: start: 20080901

REACTIONS (8)
  - BLOOD GLUCOSE DECREASED [None]
  - GLYCOSYLATED HAEMOGLOBIN INCREASED [None]
  - LOSS OF CONSCIOUSNESS [None]
  - NAUSEA [None]
  - SYNCOPE [None]
  - VISUAL ACUITY REDUCED [None]
  - VOMITING [None]
  - WEIGHT INCREASED [None]
